FAERS Safety Report 19129669 (Version 1)
Quarter: 2021Q2

REPORT INFORMATION
  Report Type: Spontaneous
  Country: US (occurrence: US)
  Receive Date: 20210413
  Receipt Date: 20210413
  Transmission Date: 20210717
  Serious: No
  Sender: FDA-Public Use
  Company Number: US-TOPROL-202000106

PATIENT
  Age: 62 Year
  Sex: Female
  Weight: 76 kg

DRUGS (2)
  1. METOPROLOL SUCCINATE. [Suspect]
     Active Substance: METOPROLOL SUCCINATE
     Route: 065
     Dates: start: 2004
  2. LAVOXEL [Concomitant]
     Route: 065

REACTIONS (5)
  - Fatigue [Unknown]
  - Off label use [Unknown]
  - Somnolence [Unknown]
  - Sluggishness [Unknown]
  - Dizziness [Unknown]
